FAERS Safety Report 5909132-X (Version None)
Quarter: 2008Q4

REPORT INFORMATION
  Report Type: 
  Country: None (occurrence: None)
  Receive Date: 20081006
  Receipt Date: 20080925
  Transmission Date: 20090506
  Serious: Yes (Hospitalization)
  Sender: FDA-Public Use
  Company Number: JP-SANOFI-SYNTHELABO-A01200812146

PATIENT
  Age: 60 Year
  Sex: Male

DRUGS (4)
  1. LEUCOVORIN CALCIUM [Suspect]
     Dosage: UNK
     Route: 041
     Dates: start: 20080922, end: 20080922
  2. AVASTIN [Suspect]
     Dosage: UNK
     Route: 041
     Dates: start: 20080922, end: 20080922
  3. ELPLAT [Suspect]
     Indication: LARGE INTESTINE CARCINOMA
     Route: 041
     Dates: start: 20080922, end: 20080922
  4. FLUOROURACIL [Suspect]
     Dosage: IV BOLUS THEN CONTINUOUS INFUSION UNK
     Route: 042
     Dates: start: 20080922, end: 20080922

REACTIONS (1)
  - LOSS OF CONSCIOUSNESS [None]
